FAERS Safety Report 5748481-5 (Version None)
Quarter: 2008Q2

REPORT INFORMATION
  Report Type: 
  Country: None (occurrence: None)
  Receive Date: 20080521
  Receipt Date: 20080508
  Transmission Date: 20081010
  Serious: Yes (Hospitalization, Other)
  Sender: FDA-Public Use
  Company Number: 235145K07USA

PATIENT
  Age: 29 Year
  Sex: Male
  Weight: 76.6579 kg

DRUGS (1)
  1. REBIF [Suspect]
     Indication: MULTIPLE SCLEROSIS
     Dosage: 44 MCG, 3 IN 1 WEEKS, SUBCUTANEOUS
     Route: 058
     Dates: start: 20050310, end: 20070809

REACTIONS (2)
  - MULTIPLE SCLEROSIS RELAPSE [None]
  - SQUAMOUS CELL CARCINOMA [None]
